FAERS Safety Report 16957348 (Version 3)
Quarter: 2021Q1

REPORT INFORMATION
  Report Type: Spontaneous
  Country: US (occurrence: US)
  Receive Date: 20191024
  Receipt Date: 20210215
  Transmission Date: 20210419
  Serious: Yes (Other)
  Sender: FDA-Public Use
  Company Number: US-JNJFOC-20191018357

PATIENT
  Sex: Female

DRUGS (2)
  1. ORTHO?NOVUM 777 [Suspect]
     Active Substance: ETHINYL ESTRADIOL\NORETHINDRONE
     Indication: PRODUCT USED FOR UNKNOWN INDICATION
     Route: 065
  2. ESTRADIOL. [Suspect]
     Active Substance: ESTRADIOL
     Indication: PRODUCT USED FOR UNKNOWN INDICATION
     Route: 065

REACTIONS (4)
  - Pregnancy on contraceptive [Recovered/Resolved]
  - Exposure during pregnancy [Recovered/Resolved]
  - Brain neoplasm [Unknown]
  - Ovarian abscess [Unknown]
